FAERS Safety Report 12837214 (Version 1)
Quarter: 2016Q4

REPORT INFORMATION
  Report Type: Spontaneous
  Country: US (occurrence: US)
  Receive Date: 20161008
  Receipt Date: 20161008
  Transmission Date: 20170207
  Serious: No
  Sender: FDA-Public Use
  Company Number: None

PATIENT
  Age: 65 Year
  Sex: Female
  Weight: 40.95 kg

DRUGS (3)
  1. CITRACAL [Concomitant]
     Active Substance: CALCIUM CITRATE
  2. PEPCID [Concomitant]
     Active Substance: FAMOTIDINE
  3. MYRBETRIQ [Suspect]
     Active Substance: MIRABEGRON
     Indication: HYPERTONIC BLADDER
     Route: 048
     Dates: start: 20160715, end: 20160904

REACTIONS (1)
  - Alopecia [None]
